FAERS Safety Report 5114662-7 (Version None)
Quarter: 2006Q3

REPORT INFORMATION
  Report Type: 
  Country: None (occurrence: None)
  Receive Date: 20060926
  Receipt Date: 20060914
  Transmission Date: 20061208
  Serious: Yes (Death, Hospitalization, Other)
  Sender: FDA-Public Use
  Company Number: US-JNJFOC-20050400523

PATIENT
  Sex: Female

DRUGS (14)
  1. REMICADE [Suspect]
     Indication: RHEUMATOID ARTHRITIS
     Route: 042
  2. POTASSIUM [Concomitant]
  3. PREDNISONE TAB [Concomitant]
  4. METHOTREXATE [Concomitant]
  5. BEXTRA [Concomitant]
  6. FOLIC ACID [Concomitant]
  7. SINGULAIR [Concomitant]
  8. PROZAC [Concomitant]
  9. LOPRESSOR [Concomitant]
  10. CATAPRES [Concomitant]
  11. SALAGEN [Concomitant]
  12. DARVOCET [Concomitant]
     Dosage: 2-4 TABLETS DAILY
  13. COMBIVENT [Concomitant]
  14. ADVAIR DISKUS 100/50 [Concomitant]

REACTIONS (5)
  - CARDIOGENIC SHOCK [None]
  - CHRONIC OBSTRUCTIVE PULMONARY DISEASE [None]
  - EMPHYSEMA [None]
  - RESPIRATORY FAILURE [None]
  - RESPIRATORY TRACT INFECTION [None]
